FAERS Safety Report 8554734-8 (Version None)
Quarter: 2012Q3

REPORT INFORMATION
  Report Type: 
  Country: None (occurrence: None)
  Receive Date: 20120731
  Receipt Date: 20120716
  Transmission Date: 20120928
  Serious: Yes (Other)
  Sender: FDA-Public Use
  Company Number: CHPA2012US015799

PATIENT
  Age: 67 Year
  Sex: Male

DRUGS (2)
  1. MAALOX NIGHTTIME CA.CARB + ALGIN.ACID [Suspect]
     Indication: GASTROOESOPHAGEAL REFLUX DISEASE
     Dosage: 1 TABLET AT NIGHT
     Route: 048
  2. MAALOX MULTI-ACTION [Suspect]
     Indication: GASTROOESOPHAGEAL REFLUX DISEASE
     Dosage: 1 ^DOLLOP^ DAILY AT BEDTIME
     Route: 048

REACTIONS (1)
  - DRUG DEPENDENCE [None]
